FAERS Safety Report 16988635 (Version 1)
Quarter: 2019Q4

REPORT INFORMATION
  Report Type: Report from Study
  Country: CA (occurrence: CA)
  Receive Date: 20191104
  Receipt Date: 20191104
  Transmission Date: 20200122
  Serious: No
  Sender: FDA-Public Use
  Company Number: CA-BEH-2019108717

PATIENT
  Age: 47 Year
  Sex: Male
  Weight: 55 kg

DRUGS (10)
  1. HIZENTRA [Suspect]
     Active Substance: HUMAN IMMUNOGLOBULIN G
     Indication: IMMUNODEFICIENCY COMMON VARIABLE
  2. CEFUROXIME. [Concomitant]
     Active Substance: CEFUROXIME
  3. PREDNISONE. [Concomitant]
     Active Substance: PREDNISONE
  4. AZITHROMYCIN ANHYDROUS. [Concomitant]
     Active Substance: AZITHROMYCIN ANHYDROUS
  5. CALCITROL [CALCITRIOL] [Concomitant]
     Active Substance: CALCITRIOL
  6. HIZENTRA [Suspect]
     Active Substance: HUMAN IMMUNOGLOBULIN G
     Indication: PRIMARY IMMUNODEFICIENCY SYNDROME
     Dosage: 16 GRAM, QOW
     Route: 058
     Dates: start: 20160810
  7. SULFATRIM [SULFADIAZINE;TRIMETHOPRIM] [Concomitant]
     Active Substance: SULFADIAZINE\TRIMETHOPRIM
  8. MYFORTIC [Concomitant]
     Active Substance: MYCOPHENOLATE SODIUM
  9. ADVAGRAF [Concomitant]
     Active Substance: TACROLIMUS
  10. METOPROLOL. [Concomitant]
     Active Substance: METOPROLOL

REACTIONS (1)
  - Anxiety [Not Recovered/Not Resolved]

NARRATIVE: CASE EVENT DATE: 20190401
